FAERS Safety Report 8909469 (Version 3)
Quarter: 2013Q1

REPORT INFORMATION
  Report Type: Report from Study
  Country: US (occurrence: US)
  Receive Date: 20121115
  Receipt Date: 20130104
  Transmission Date: 20140127
  Serious: No
  Sender: FDA-Public Use
  Company Number: US-VERTEX PHARMACEUTICAL INC.-2012-024426

PATIENT
  Age: 62 None
  Sex: Female
  Weight: 59 kg

DRUGS (3)
  1. VX-950 (TELAPREVIR) [Suspect]
     Indication: HEPATITIS C
     Dosage: 750 MG, TID
     Route: 048
     Dates: start: 20121105
  2. RIBASPHERE [Suspect]
     Indication: HEPATITIS C
     Dosage: 600MG QAM, 400MG QPM
     Route: 048
     Dates: start: 20121105
  3. PEGASYS [Suspect]
     Indication: HEPATITIS C
     Dosage: 180 ?G, WEEKLY
     Route: 058
     Dates: start: 20121105

REACTIONS (12)
  - Loss of consciousness [Unknown]
  - White blood cell count decreased [Unknown]
  - Headache [Unknown]
  - Influenza [Unknown]
  - Bone pain [Unknown]
  - Irritability [Unknown]
  - Fatigue [Unknown]
  - Red blood cell count decreased [Unknown]
  - Haemoglobin decreased [Unknown]
  - Haematocrit decreased [Unknown]
  - Haemorrhoids [Unknown]
  - Nausea [Unknown]
